FAERS Safety Report 7989281-5 (Version None)
Quarter: 2011Q4

REPORT INFORMATION
  Report Type: 
  Country: None (occurrence: None)
  Receive Date: 20111219
  Receipt Date: 20111214
  Transmission Date: 20120403
  Serious: Yes (Death, Hospitalization)
  Sender: FDA-Public Use
  Company Number: GB-AMGEN-GBRCT2011037314

PATIENT
  Age: 61 Year
  Sex: Male
  Weight: 73 kg

DRUGS (7)
  1. NEULASTA [Suspect]
     Indication: CHEMOTHERAPY
     Dosage: 6 MG, UNK
     Dates: start: 20101003
  2. IFOSFAMIDE [Suspect]
     Dosage: 9500 MG, UNK
     Dates: start: 20100927
  3. MOVICOL                            /01625101/ [Concomitant]
     Dosage: 1 DF, BID
     Route: 048
     Dates: start: 20101029
  4. PACLITAXEL [Suspect]
     Dosage: 333 MG, UNK
     Dates: start: 20100927
  5. GEMCITABINE [Suspect]
     Dosage: 1900 MG, UNK
     Dates: start: 20100927
  6. LANSOPRAZOLE [Concomitant]
     Dosage: 80 MG, QD
     Route: 048
     Dates: start: 20100801
  7. CISPLATIN [Suspect]
     Dosage: 190 MG, UNK
     Dates: start: 20100927

REACTIONS (2)
  - RENAL IMPAIRMENT [None]
  - BLOOD POTASSIUM DECREASED [None]
